FAERS Safety Report 10256577 (Version 2)
Quarter: 2014Q2

REPORT INFORMATION
  Report Type: Spontaneous
  Country: US (occurrence: US)
  Receive Date: 20140624
  Receipt Date: 20140624
  Transmission Date: 20141212
  Serious: Yes (Death, Other)
  Sender: FDA-Public Use
  Company Number: PHHY2014US074373

PATIENT
  Sex: Male

DRUGS (7)
  1. BACLOFEN INTRATHECAL [Suspect]
     Indication: MUSCLE SPASTICITY
     Dosage: 973.1 UG, PER DAY
     Route: 037
  2. BACLOFEN [Suspect]
     Dosage: 10 MG, UNK
     Route: 048
  3. BACLOFEN [Suspect]
     Dosage: DOSE INCREASED
     Route: 048
  4. DIPHENHYDRAMINE [Suspect]
     Dosage: UNK UKN, UNK
     Route: 048
  5. LYRICA [Suspect]
     Dosage: UNK UKN, UNK
     Route: 048
  6. OXYCONTIN [Suspect]
     Dosage: UNK UKN, UNK
     Route: 048
  7. FENTANYL [Suspect]
     Dosage: UNK UKN, UNK

REACTIONS (2)
  - Muscle spasticity [Fatal]
  - Overdose [Fatal]
